FAERS Safety Report 13068205 (Version 1)
Quarter: 2016Q4

REPORT INFORMATION
  Report Type: Spontaneous
  Country: IT (occurrence: IT)
  Receive Date: 20161228
  Receipt Date: 20161228
  Transmission Date: 20170207
  Serious: Yes (Other)
  Sender: FDA-Public Use
  Company Number: IT-AUROBINDO-AUR-APL-2014-02639

PATIENT
  Age: 12 Year
  Sex: Female

DRUGS (1)
  1. RISPERIDONE. [Suspect]
     Active Substance: RISPERIDONE
     Dosage: 0.75 MG, TWO TIMES A DAY
     Route: 065

REACTIONS (12)
  - Hypertension [Recovered/Resolved]
  - Renal artery stenosis [Recovered/Resolved]
  - Asthenia [Recovered/Resolved]
  - Decreased appetite [Recovered/Resolved]
  - Visual impairment [Recovered/Resolved]
  - Headache [Recovered/Resolved]
  - Seizure [Recovered/Resolved]
  - Metal poisoning [Recovered/Resolved]
  - Left ventricular hypertrophy [Recovered/Resolved]
  - Brain oedema [Recovered/Resolved]
  - Insomnia [Recovered/Resolved]
  - Thyroid function test abnormal [Recovered/Resolved]
